FAERS Safety Report 8916557 (Version 1)
Quarter: 2012Q4

REPORT INFORMATION
  Report Type: 
  Country: CL (occurrence: CL)
  Receive Date: 20121120
  Receipt Date: 20121120
  Transmission Date: 20130627
  Serious: Yes (Death, Other)
  Sender: FDA-Public Use
  Company Number: CL-TEVA-370571ISR

PATIENT
  Sex: Female
  Weight: 57 kg

DRUGS (4)
  1. PACLITAXEL [Suspect]
     Indication: FALLOPIAN TUBE CANCER
     Dosage: 240 Milligram Daily;
     Route: 042
     Dates: start: 20121030, end: 20121030
  2. CARBOPLATIN [Concomitant]
     Indication: FALLOPIAN TUBE CANCER
     Dosage: 415 Milligram Daily;
     Route: 042
     Dates: start: 20121030, end: 20121030
  3. DEXAMETASONE [Concomitant]
     Dosage: 8 Milligram Daily;
     Route: 042
  4. CLOROTRIMETON [Concomitant]
     Dosage: 10 Milligram Daily;
     Route: 042
     Dates: start: 20121030, end: 20121030

REACTIONS (3)
  - Cardio-respiratory arrest [Fatal]
  - Loss of consciousness [Not Recovered/Not Resolved]
  - Pallor [Not Recovered/Not Resolved]
